FAERS Safety Report 8839868 (Version 3)
Quarter: 2012Q4

REPORT INFORMATION
  Report Type: 
  Country: US (occurrence: US)
  Receive Date: 20121015
  Receipt Date: 20121107
  Transmission Date: 20130627
  Serious: Yes (Death, Hospitalization)
  Sender: FDA-Public Use
  Company Number: US-CELGENEUS-163-21880-12101305

PATIENT
  Age: 76 None
  Sex: Male

DRUGS (4)
  1. REVLIMID [Suspect]
     Indication: MULTIPLE MYELOMA
     Dosage: 5 Milligram
     Route: 048
     Dates: start: 20110523, end: 2011
  2. REVLIMID [Suspect]
     Dosage: 25-20mg
     Route: 048
     Dates: start: 201109, end: 2012
  3. REVLIMID [Suspect]
     Dosage: 10 Milligram
     Route: 048
     Dates: start: 201204
  4. REVLIMID [Suspect]
     Dosage: 10 Milligram
     Route: 048
     Dates: start: 20120904

REACTIONS (4)
  - Death [Fatal]
  - Hip fracture [Unknown]
  - Myocardial infarction [Unknown]
  - Fall [Unknown]
